FAERS Safety Report 11847865 (Version 2)
Quarter: 2016Q4

REPORT INFORMATION
  Report Type: Spontaneous
  Country: US (occurrence: US)
  Receive Date: 20151217
  Receipt Date: 20161024
  Transmission Date: 20170206
  Serious: No
  Sender: FDA-Public Use
  Company Number: US-CELGENEUS-USA-2015122353

PATIENT
  Age: 71 Year
  Sex: Female

DRUGS (1)
  1. OTEZLA [Suspect]
     Active Substance: APREMILAST
     Indication: PSORIASIS
     Dosage: 60 MILLIGRAM
     Route: 048
     Dates: start: 20141001

REACTIONS (2)
  - Malaise [Recovering/Resolving]
  - Psoriasis [Recovering/Resolving]

NARRATIVE: CASE EVENT DATE: 20141001
